FAERS Safety Report 4458001-3 (Version None)
Quarter: 2004Q3

REPORT INFORMATION
  Report Type: 
  Country: None (occurrence: None)
  Receive Date: 20040917
  Receipt Date: 20040405
  Transmission Date: 20050211
  Serious: Yes (Hospitalization)
  Sender: FDA-Public Use
  Company Number: US-JNJFOC-20040401371

PATIENT
  Age: 57 Year
  Sex: Male
  Weight: 89.8122 kg

DRUGS (7)
  1. TOPAMAX [Suspect]
     Indication: CONVULSION
     Dosage: 100 MG, 2 IN 1 DAY, ORAL
     Route: 048
     Dates: start: 20031001
  2. ATENOLOL [Concomitant]
  3. LOPID [Concomitant]
  4. LIPITOR [Concomitant]
  5. ISORDIL [Concomitant]
  6. ROBAXIN [Concomitant]
  7. ULTRAM [Concomitant]

REACTIONS (4)
  - BACK PAIN [None]
  - CHEST PAIN [None]
  - LIVER FUNCTION TEST ABNORMAL [None]
  - NAUSEA [None]
